FAERS Safety Report 21281038 (Version 1)
Quarter: 2022Q3

REPORT INFORMATION
  Report Type: Spontaneous
  Country: US (occurrence: None)
  Receive Date: 20220831
  Receipt Date: 20220831
  Transmission Date: 20221027
  Serious: No
  Sender: FDA-Public Use
  Company Number: None

PATIENT
  Age: 58 Year
  Sex: Female
  Weight: 104.78 kg

DRUGS (12)
  1. INLYTA [Suspect]
     Active Substance: AXITINIB
     Indication: Renal cancer
     Dosage: FREQUENCY : EVERY 12 HOURS;?
     Route: 048
     Dates: start: 202205, end: 20220829
  2. CLOBETASOL [Concomitant]
     Active Substance: CLOBETASOL
  3. EMERGEN-C [Concomitant]
     Active Substance: VITAMINS
  4. FLONASE [Concomitant]
     Active Substance: FLUTICASONE PROPIONATE
  5. GLUCOSAMINE [Concomitant]
     Active Substance: GLUCOSAMINE
  6. KEYTRUDA [Concomitant]
     Active Substance: PEMBROLIZUMAB
  7. LEVOTHYROXINE [Concomitant]
     Active Substance: LEVOTHYROXINE
  8. LISINOPRIL [Concomitant]
     Active Substance: LISINOPRIL
  9. VITAMINS [Concomitant]
     Active Substance: VITAMINS
  10. ONDANSETRON [Concomitant]
     Active Substance: ONDANSETRON
  11. OXYCODONE [Concomitant]
  12. FISH OIL [Concomitant]
     Active Substance: FISH OIL

REACTIONS (3)
  - Hypertension [None]
  - Oral mucosal blistering [None]
  - Skin ulcer [None]
